FAERS Safety Report 11202109 (Version 1)
Quarter: 2015Q2

REPORT INFORMATION
  Report Type: Spontaneous
  Country: US (occurrence: None)
  Receive Date: 20150617
  Receipt Date: 20150617
  Transmission Date: 20150821
  Serious: Yes (Death)
  Sender: FDA-Public Use
  Company Number: PR10719

PATIENT
  Age: 47 Year
  Sex: Female
  Weight: 37 kg

DRUGS (5)
  1. PANTOPRAZOLE [Concomitant]
     Active Substance: PANTOPRAZOLE SODIUM
  2. CLINDAMYCIN [Suspect]
     Active Substance: CLINDAMYCIN\CLINDAMYCIN PHOSPHATE
     Route: 042
  3. CEFOTIAM [Concomitant]
     Active Substance: CEFOTIAM
  4. TRAMADOL [Concomitant]
     Active Substance: TRAMADOL
  5. FENTANYL. [Concomitant]
     Active Substance: FENTANYL

REACTIONS (4)
  - Nausea [None]
  - Respiratory depression [None]
  - Somnolence [None]
  - Cardiac arrest [None]
